FAERS Safety Report 8829182 (Version 2)
Quarter: 2012Q4

REPORT INFORMATION
  Report Type: Report from Study
  Country: JP (occurrence: JP)
  Receive Date: 20121008
  Receipt Date: 20121011
  Transmission Date: 20130627
  Serious: Yes (Death, Hospitalization, Other)
  Sender: FDA-Public Use
  Company Number: PHHY2012JP087380

PATIENT
  Age: 61 Year
  Sex: Female
  Weight: 66 kg

DRUGS (17)
  1. ALISKIREN [Suspect]
     Indication: HYPERTENSION
     Dosage: 150 mg, QD
     Route: 048
     Dates: start: 20101101, end: 20110930
  2. PURSENNID [Concomitant]
     Dosage: 2 DF, UNK
     Route: 048
     Dates: start: 20101013
  3. CARDENALIN [Concomitant]
     Indication: HYPERTENSION
     Dosage: 2 mg, UNK
     Route: 048
     Dates: start: 20100710, end: 20110930
  4. ATELEC [Concomitant]
     Indication: HYPERTENSION
     Dosage: 10 mg, UNK
     Dates: start: 20100710
  5. CALCIUM CARBONATE [Concomitant]
     Dosage: 150 mg, UNK
     Route: 048
     Dates: start: 20100710
  6. ALFAROL [Concomitant]
     Dosage: 0.25 ug, UNK
     Route: 048
     Dates: start: 20110408
  7. RHYTHMY [Concomitant]
     Dosage: 2 mg, UNK
     Route: 048
     Dates: start: 20100710
  8. SELBEX [Concomitant]
     Dosage: 2 DF, UNK
     Route: 048
     Dates: start: 20100710
  9. LORELCO [Concomitant]
     Dosage: 500 mg, UNK
     Route: 048
     Dates: start: 20100710
  10. FLUITRAN [Concomitant]
     Dosage: 1 DF, UNK
     Route: 048
     Dates: start: 20100710
  11. GLAKAY [Concomitant]
     Dosage: 3 DF, UNK
     Route: 048
     Dates: start: 20100710
  12. SHAKUYAKUKANZOUTO [Concomitant]
     Dosage: 1 DF, UNK
     Route: 048
     Dates: start: 20100710
  13. DAIOKANZOTO [Concomitant]
     Dosage: 3 DF, UNK
     Route: 048
     Dates: start: 20101013
  14. LIPITOR [Concomitant]
     Dosage: 2 DF, UNK
     Route: 048
     Dates: start: 20100710
  15. PREDNISOLONE [Concomitant]
     Dosage: 75 mg, UNK
     Route: 048
     Dates: start: 20100710
  16. ORCL [Concomitant]
     Dosage: 100 mg, UNK
     Route: 048
     Dates: start: 20100710
  17. GASTER [Concomitant]
     Dosage: 20 mg, UNK
     Route: 048
     Dates: start: 20100710

REACTIONS (3)
  - Brain stem haemorrhage [Fatal]
  - Hypertension [Unknown]
  - Blood pressure decreased [Recovering/Resolving]
